FAERS Safety Report 22836818 (Version 3)
Quarter: 2023Q4

REPORT INFORMATION
  Report Type: Report from Study
  Country: US (occurrence: US)
  Receive Date: 20230818
  Receipt Date: 20231120
  Transmission Date: 20240110
  Serious: Yes (Other)
  Sender: FDA-Public Use
  Company Number: US-TAKEDA-2022TUS083769

PATIENT
  Age: 74 Year
  Sex: Female
  Weight: 45 kg

DRUGS (9)
  1. MOBOCERTINIB [Suspect]
     Active Substance: MOBOCERTINIB
     Indication: Lung neoplasm malignant
     Dosage: 160 MILLIGRAM, QD
     Route: 048
     Dates: start: 20221102, end: 20221111
  2. MOBOCERTINIB [Suspect]
     Active Substance: MOBOCERTINIB
     Indication: Lung cancer metastatic
     Dosage: 160 MILLIGRAM, QD
     Route: 048
     Dates: start: 20221104
  3. MOBOCERTINIB [Suspect]
     Active Substance: MOBOCERTINIB
     Indication: Lung neoplasm malignant
     Dosage: 120 MILLIGRAM
     Route: 048
     Dates: start: 20221122, end: 20221201
  4. MOBOCERTINIB [Suspect]
     Active Substance: MOBOCERTINIB
     Dosage: 80 MILLIGRAM, QD
     Route: 048
     Dates: start: 20221207
  5. MOBOCERTINIB [Suspect]
     Active Substance: MOBOCERTINIB
     Dosage: 80 MILLIGRAM
     Route: 048
  6. ATORVASTATIN [Concomitant]
     Active Substance: ATORVASTATIN
     Dosage: 10 MILLIGRAM, QD
     Route: 065
  7. IRBESARTAN [Concomitant]
     Active Substance: IRBESARTAN
     Indication: Hypertension
     Dosage: 75 MILLIGRAM, QD
     Route: 065
  8. OLMESARTAN [Concomitant]
     Active Substance: OLMESARTAN
     Dosage: UNK
     Route: 065
  9. ALPRAZOLAM [Concomitant]
     Active Substance: ALPRAZOLAM
     Dosage: UNK

REACTIONS (32)
  - Ulcer haemorrhage [Unknown]
  - Onychomadesis [Not Recovered/Not Resolved]
  - Skin fissures [Unknown]
  - Rhinorrhoea [Unknown]
  - Alopecia [Recovered/Resolved]
  - Stomatitis [Not Recovered/Not Resolved]
  - Diarrhoea [Not Recovered/Not Resolved]
  - Abdominal distension [Not Recovered/Not Resolved]
  - Oral discomfort [Not Recovered/Not Resolved]
  - Swollen tongue [Unknown]
  - Swelling face [Unknown]
  - Anxiety [Unknown]
  - Papule [Not Recovered/Not Resolved]
  - Onychalgia [Unknown]
  - Chapped lips [Unknown]
  - Tongue discomfort [Unknown]
  - Lip swelling [Recovering/Resolving]
  - Oral pain [Recovered/Resolved]
  - Skin disorder [Unknown]
  - Blister [Unknown]
  - Blood pressure increased [Unknown]
  - Headache [Recovered/Resolved]
  - Musculoskeletal pain [Unknown]
  - Pain in extremity [Unknown]
  - Onycholysis [Unknown]
  - Rash [Unknown]
  - Rash pustular [Unknown]
  - Weight decreased [Unknown]
  - Cheilitis [Recovering/Resolving]
  - Dry skin [Unknown]
  - Nausea [Recovered/Resolved]
  - Decreased appetite [Not Recovered/Not Resolved]

NARRATIVE: CASE EVENT DATE: 20221104
